FAERS Safety Report 9775654 (Version 2)
Quarter: 2014Q1

REPORT INFORMATION
  Report Type: Spontaneous
  Country: IT (occurrence: IT)
  Receive Date: 20131220
  Receipt Date: 20140116
  Transmission Date: 20141002
  Serious: Yes (Hospitalization)
  Sender: FDA-Public Use
  Company Number: IT-SA-2013SA129518

PATIENT
  Age: 80 Year
  Sex: Female

DRUGS (2)
  1. KARVEZIDE [Suspect]
     Indication: ESSENTIAL HYPERTENSION
     Route: 048
     Dates: start: 20121205, end: 20131205
  2. CARDURA [Suspect]
     Indication: ESSENTIAL HYPERTENSION
     Dosage: STRENGTH:2 MG
     Route: 048
     Dates: start: 20131110, end: 20131205

REACTIONS (3)
  - Fall [Unknown]
  - Syncope [Recovered/Resolved]
  - Vertigo [Recovered/Resolved]
